FAERS Safety Report 10008238 (Version 3)
Quarter: 2015Q3

REPORT INFORMATION
  Report Type: Spontaneous
  Country: US (occurrence: US)
  Receive Date: 20140313
  Receipt Date: 20150814
  Transmission Date: 20151125
  Serious: No
  Sender: FDA-Public Use
  Company Number: US-GILEAD-2013-0071332

PATIENT
  Age: 76 Year
  Sex: Female

DRUGS (2)
  1. LETAIRIS [Suspect]
     Active Substance: AMBRISENTAN
     Indication: PRODUCT USED FOR UNKNOWN INDICATION
     Dosage: 5 MG, QD
     Dates: start: 20110314
  2. VENTAVIS [Concomitant]
     Active Substance: ILOPROST

REACTIONS (4)
  - Back pain [Unknown]
  - Headache [Unknown]
  - Facial pain [Unknown]
  - Bone pain [Unknown]
